FAERS Safety Report 7816307-1 (Version None)
Quarter: 2011Q4

REPORT INFORMATION
  Report Type: 
  Country: None (occurrence: None)
  Receive Date: 20111017
  Receipt Date: 20111012
  Transmission Date: 20120403
  Serious: Yes (Hospitalization)
  Sender: FDA-Public Use
  Company Number: AR-BRISTOL-MYERS SQUIBB COMPANY-15945470

PATIENT
  Age: 29 Year
  Sex: Female

DRUGS (2)
  1. IXEMPRA KIT [Suspect]
     Indication: BREAST CANCER
     Dates: start: 20110715
  2. CAPECITABINE [Suspect]
     Indication: BREAST CANCER
     Dosage: 1 DF = 6 DOSE

REACTIONS (5)
  - BURNING SENSATION [None]
  - SKIN DISCOLOURATION [None]
  - BONE PAIN [None]
  - PAIN [None]
  - GAIT DISTURBANCE [None]
